FAERS Safety Report 7741023-4 (Version None)
Quarter: 2011Q3

REPORT INFORMATION
  Report Type: 
  Country: None (occurrence: None)
  Receive Date: 20110909
  Receipt Date: 20110825
  Transmission Date: 20111222
  Serious: Yes (Other)
  Sender: FDA-Public Use
  Company Number: US-BAYER-2010-009274

PATIENT
  Age: 41 Year
  Sex: Female

DRUGS (3)
  1. AZOR [Concomitant]
  2. PLAVIX [Concomitant]
  3. YAZ [Suspect]
     Indication: PRODUCT USED FOR UNKNOWN INDICATION
     Dosage: UNK
     Dates: start: 20081207, end: 20081229

REACTIONS (7)
  - AMNESIA [None]
  - MUSCULAR WEAKNESS [None]
  - PAIN [None]
  - ANXIETY [None]
  - INJURY [None]
  - MOTOR DYSFUNCTION [None]
  - CEREBROVASCULAR ACCIDENT [None]
